FAERS Safety Report 20031101 (Version 1)
Quarter: 2021Q4

REPORT INFORMATION
  Report Type: Spontaneous
  Country: US (occurrence: US)
  Receive Date: 20211103
  Receipt Date: 20211103
  Transmission Date: 20220303
  Serious: No
  Sender: FDA-Public Use
  Company Number: US-ALLERGAN-2100199US

PATIENT
  Age: 65 Year
  Sex: Male

DRUGS (3)
  1. VRAYLAR [Suspect]
     Active Substance: CARIPRAZINE
     Indication: Bipolar I disorder
     Dosage: 1.5 MG EVERY THIRD DAY
  2. VRAYLAR [Suspect]
     Active Substance: CARIPRAZINE
     Dosage: 1.5 MG, QOD
  3. VRAYLAR [Suspect]
     Active Substance: CARIPRAZINE
     Dosage: 1.5 MG, QD

REACTIONS (7)
  - Memory impairment [Recovering/Resolving]
  - Pharyngeal paraesthesia [Recovering/Resolving]
  - Cognitive disorder [Recovering/Resolving]
  - Diarrhoea [Recovering/Resolving]
  - Extrapyramidal disorder [Recovering/Resolving]
  - Nausea [Recovering/Resolving]
  - Protrusion tongue [Recovering/Resolving]
